FAERS Safety Report 4287215-0 (Version None)
Quarter: 2004Q1

REPORT INFORMATION
  Report Type: 
  Country: None (occurrence: None)
  Receive Date: 20040126
  Receipt Date: 20031106
  Transmission Date: 20041129
  Serious: No
  Sender: FDA-Public Use
  Company Number: USA031151954

PATIENT
  Age: 76 Year
  Sex: Male

DRUGS (3)
  1. FORTEO [Suspect]
     Indication: OSTEOPOROSIS
     Dates: start: 20031104
  2. VITAMINS NOS [Concomitant]
  3. CALCIUM [Concomitant]

REACTIONS (2)
  - BACK PAIN [None]
  - MUSCLE SPASMS [None]
